FAERS Safety Report 9356633 (Version 1)
Quarter: 2013Q2

REPORT INFORMATION
  Report Type: Spontaneous
  Country: CV (occurrence: CA)
  Receive Date: 20130619
  Receipt Date: 20130619
  Transmission Date: 20140414
  Serious: Yes (Other)
  Sender: FDA-Public Use
  Company Number: CA-B.I. PHARMACEUTICALS,INC./RIDGEFIELD-2013-CN-01099CN

PATIENT
  Sex: Male

DRUGS (2)
  1. PRADAXA [Suspect]
     Dosage: 220 MG
  2. ACE INHIBITOR [Concomitant]

REACTIONS (2)
  - Renal failure acute [Unknown]
  - Dehydration [Unknown]
